FAERS Safety Report 4502074-6 (Version None)
Quarter: 2004Q4

REPORT INFORMATION
  Report Type: 
  Country: None (occurrence: None)
  Receive Date: 20041116
  Receipt Date: 20040709
  Transmission Date: 20050328
  Serious: Yes (Hospitalization, Other)
  Sender: FDA-Public Use
  Company Number: US-MERCK-0407USA00890

PATIENT
  Age: 54 Year
  Sex: Female
  Weight: 76 kg

DRUGS (36)
  1. VIOXX [Suspect]
     Indication: ARTHRALGIA
     Route: 048
     Dates: start: 19991201, end: 20030101
  2. VIOXX [Suspect]
     Indication: OSTEOARTHRITIS
     Route: 048
     Dates: start: 19991201, end: 20030101
  3. PROCARDIA [Concomitant]
     Indication: HYPERTENSION
     Route: 065
     Dates: start: 19980101
  4. ESTROGENS (UNSPECIFIED) [Concomitant]
     Indication: HORMONE REPLACEMENT THERAPY
     Route: 065
     Dates: start: 20010101, end: 20020101
  5. PLAVIX [Concomitant]
     Indication: STENT PLACEMENT
     Route: 065
     Dates: start: 20010929, end: 20011004
  6. ASPIRIN [Concomitant]
     Indication: PROPHYLAXIS
     Route: 065
     Dates: start: 20000101
  7. ALEVE [Concomitant]
     Indication: HEADACHE
     Route: 065
     Dates: start: 20021103
  8. ALEVE [Concomitant]
     Indication: BACK PAIN
     Route: 065
     Dates: start: 20021103
  9. TYLENOL [Concomitant]
     Indication: HEADACHE
     Route: 065
     Dates: start: 20021103
  10. TYLENOL [Concomitant]
     Indication: BACK PAIN
     Route: 065
     Dates: start: 20021103
  11. HYDROCODONE HYDROCHLORIDE [Concomitant]
     Indication: PAIN
     Route: 065
     Dates: start: 20010101, end: 20020101
  12. SOMA [Concomitant]
     Indication: PAIN
     Route: 065
     Dates: start: 20020101
  13. VICODIN [Concomitant]
     Indication: PAIN
     Route: 065
     Dates: start: 20010101, end: 20020101
  14. VICODIN [Concomitant]
     Indication: OSTEOARTHRITIS
     Route: 065
     Dates: start: 20010101, end: 20020101
  15. FLEXERIL [Concomitant]
     Indication: PAIN
     Route: 065
     Dates: start: 20020101, end: 20020101
  16. LORCET-HD [Concomitant]
     Indication: PAIN
     Route: 065
     Dates: start: 20020101, end: 20030101
  17. LORCET-HD [Concomitant]
     Indication: OSTEOARTHRITIS
     Route: 065
     Dates: start: 20020101, end: 20030101
  18. KLONOPIN [Concomitant]
     Indication: GENERALISED ANXIETY DISORDER
     Route: 065
     Dates: start: 20010901
  19. ZYPREXA [Concomitant]
     Indication: PSYCHOTIC DISORDER
     Route: 065
  20. TEMAZEPAM [Concomitant]
     Indication: ANXIETY
     Route: 065
  21. PRILOSEC [Concomitant]
     Route: 065
  22. AVELOX [Concomitant]
     Route: 065
  23. ESTROPIPATE [Concomitant]
     Route: 065
  24. CARAFATE [Concomitant]
     Route: 065
  25. AMOXIL [Concomitant]
     Route: 065
  26. BUTALBITAL [Concomitant]
     Route: 065
  27. CLARITIN [Concomitant]
     Route: 065
  28. FOSAMAX [Concomitant]
     Indication: OSTEOPOROSIS
     Route: 048
  29. CEPHALEXIN [Concomitant]
     Route: 065
  30. ATENOLOL [Concomitant]
     Route: 065
  31. ISOSORBIDE [Concomitant]
     Route: 065
  32. HISTINEX D [Concomitant]
     Route: 065
  33. ULTRAM [Concomitant]
     Route: 065
     Dates: start: 20020101
  34. [THERAPY UNSPECIFIED] [Concomitant]
     Route: 065
  35. PHENERGAN [Concomitant]
     Route: 065
  36. NITROGLYCERIN [Concomitant]
     Route: 065
     Dates: start: 20000101

REACTIONS (20)
  - ANEURYSM [None]
  - ANXIETY DISORDER [None]
  - BACK PAIN [None]
  - BLOOD CHOLESTEROL INCREASED [None]
  - BRAIN NEOPLASM BENIGN [None]
  - CAROTID ARTERY OCCLUSION [None]
  - CEREBROVASCULAR ACCIDENT [None]
  - COLON NEOPLASM [None]
  - CORONARY ARTERY OCCLUSION [None]
  - EMOTIONAL DISTRESS [None]
  - GENERALISED ANXIETY DISORDER [None]
  - HEADACHE [None]
  - INJURY [None]
  - MIGRAINE [None]
  - MYOCARDIAL INFARCTION [None]
  - NECK PAIN [None]
  - OSTEOARTHRITIS [None]
  - POST PROCEDURAL HAEMORRHAGE [None]
  - SINUS DISORDER [None]
  - SPINAL OSTEOARTHRITIS [None]
